FAERS Safety Report 4644529-X (Version None)
Quarter: 2005Q2

REPORT INFORMATION
  Report Type: 
  Country: None (occurrence: None)
  Receive Date: 20050426
  Receipt Date: 20050414
  Transmission Date: 20051028
  Serious: Yes (Hospitalization, Other)
  Sender: FDA-Public Use
  Company Number: PL-JNJFOC-20050206392

PATIENT
  Age: 62 Year
  Sex: Male

DRUGS (9)
  1. ABCIXIMAB [Suspect]
     Route: 042
  2. ABCIXIMAB [Suspect]
     Indication: ACUTE MYOCARDIAL INFARCTION
     Route: 042
  3. HEPARIN [Concomitant]
  4. ASPIRIN [Concomitant]
  5. CLOPIDOGREL [Concomitant]
  6. NITROGLYCERIN [Concomitant]
  7. BETA BLOCKER [Concomitant]
  8. ACE INHIBITOR [Concomitant]
  9. STATIN [Concomitant]

REACTIONS (3)
  - POST PROCEDURAL HAEMATOMA [None]
  - STENT OCCLUSION [None]
  - THROMBOCYTOPENIA [None]
